FAERS Safety Report 12549156 (Version 1)
Quarter: 2016Q3

REPORT INFORMATION
  Report Type: Spontaneous
  Country: CH (occurrence: CH)
  Receive Date: 20160712
  Receipt Date: 20160712
  Transmission Date: 20161109
  Serious: Yes (Other)
  Sender: FDA-Public Use
  Company Number: CH-LPDUSPRD-20160589

PATIENT
  Age: 53 Year
  Sex: Female
  Weight: 87 kg

DRUGS (1)
  1. VENOFER [Suspect]
     Active Substance: IRON SUCROSE
     Dosage: 100MG PER WEEK X5
     Route: 041
     Dates: start: 20160513

REACTIONS (4)
  - Eye swelling [Unknown]
  - Infusion site swelling [Unknown]
  - Infusion site eczema [Unknown]
  - Feeling hot [Unknown]

NARRATIVE: CASE EVENT DATE: 2016
